FAERS Safety Report 4705581-6 (Version None)
Quarter: 2005Q2

REPORT INFORMATION
  Report Type: 
  Country: None (occurrence: None)
  Receive Date: 20050629
  Receipt Date: 20040611
  Transmission Date: 20051028
  Serious: Yes (Hospitalization)
  Sender: FDA-Public Use
  Company Number: 200411631EU

PATIENT
  Age: 51 Year
  Sex: Male
  Weight: 62 kg

DRUGS (3)
  1. CISPLATIN [Suspect]
     Indication: HYPOPHARYNGEAL CANCER
     Dosage: 160 MG/DAY IV
     Route: 042
     Dates: start: 20031217, end: 20040506
  2. FLUOROURACIL [Suspect]
     Indication: HYPOPHARYNGEAL CANCER
     Dosage: IV
     Route: 042
     Dates: start: 20031218
  3. RADIOTHERAPY [Suspect]
     Indication: HYPOPHARYNGEAL CANCER
     Dates: end: 20040517

REACTIONS (4)
  - DYSPHAGIA [None]
  - HYPONATRAEMIA [None]
  - MALNUTRITION [None]
  - ODYNOPHAGIA [None]
